FAERS Safety Report 12639795 (Version 1)
Quarter: 2016Q3

REPORT INFORMATION
  Report Type: Spontaneous
  Country: US (occurrence: None)
  Receive Date: 20160809
  Receipt Date: 20160809
  Transmission Date: 20161109
  Serious: No
  Sender: FDA-Public Use
  Company Number: None

PATIENT
  Age: 67 Year
  Sex: Male
  Weight: 95.26 kg

DRUGS (5)
  1. AMLODIPINE BESYLATE, 10MG [Suspect]
     Active Substance: AMLODIPINE BESYLATE
     Indication: BLOOD PRESSURE MEASUREMENT
     Dosage: 10 MG, 40 MG 1 PILL ONCE DAILY MOUTH
     Route: 048
     Dates: start: 20160629
  2. VITAMIN D [Concomitant]
     Active Substance: CHOLECALCIFEROL
  3. LISINOPRIL, 40MG [Suspect]
     Active Substance: LISINOPRIL
     Indication: BLOOD PRESSURE MEASUREMENT
     Dosage: 1 PILL ONCE DAILY MOUTH
     Route: 048
     Dates: start: 20160629
  4. VITAMIN C [Concomitant]
     Active Substance: ASCORBIC ACID
  5. HYDROCONDONE [Concomitant]
     Active Substance: HYDROCODONE

REACTIONS (5)
  - Peripheral coldness [None]
  - Cough [None]
  - Glycosylated haemoglobin increased [None]
  - Joint swelling [None]
  - Oropharyngeal pain [None]
